FAERS Safety Report 6059090-5 (Version None)
Quarter: 2009Q1

REPORT INFORMATION
  Report Type: 
  Country: None (occurrence: None)
  Receive Date: 20090130
  Receipt Date: 20090126
  Transmission Date: 20090719
  Serious: Yes (Other)
  Sender: FDA-Public Use
  Company Number: US-JNJFOC-20090107023

PATIENT
  Age: 50 Year
  Sex: Female
  Weight: 58.97 kg

DRUGS (4)
  1. EXTRA STRENGTH TYLENOL [Suspect]
     Indication: HEADACHE
     Route: 048
  2. EXTRA STRENGTH TYLENOL [Suspect]
     Indication: PAIN
     Dosage: 500-1000 MG AS NECESSARY
     Route: 048
  3. METOPROLOL [Concomitant]
     Indication: HYPERTENSION
  4. PREVACID [Concomitant]
     Indication: GASTROOESOPHAGEAL REFLUX DISEASE

REACTIONS (6)
  - CHEST DISCOMFORT [None]
  - DYSPHAGIA [None]
  - PALPITATIONS [None]
  - PARAESTHESIA ORAL [None]
  - RHINORRHOEA [None]
  - URTICARIA [None]
